FAERS Safety Report 9373194 (Version 1)
Quarter: 2013Q2

REPORT INFORMATION
  Report Type: Spontaneous
  Country: DE (occurrence: DE)
  Receive Date: 20130627
  Receipt Date: 20130627
  Transmission Date: 20140414
  Serious: Yes (Other)
  Sender: FDA-Public Use
  Company Number: DE-AMGEN-DEUSP2013045248

PATIENT
  Age: 62 Year
  Sex: Female

DRUGS (5)
  1. ENBREL [Suspect]
     Indication: ANKYLOSING SPONDYLITIS
     Dosage: 50 MG, WEEKLY
     Route: 065
     Dates: start: 20130408
  2. PREDNISOLON                        /00016201/ [Concomitant]
     Dosage: 6 MG AT THE TIME
  3. OMEPRAZOL                          /00661201/ [Concomitant]
     Dosage: UNK UNK, UNK
  4. EUTHYROX [Concomitant]
     Dosage: 100 MG, 4 DAYS
  5. EUTHYROX [Concomitant]
     Dosage: 112 MG, UNK

REACTIONS (4)
  - Hyperthyroidism [Unknown]
  - Hyperhidrosis [Unknown]
  - Thyroid function test abnormal [Unknown]
  - Weight decreased [Unknown]
